FAERS Safety Report 9404515 (Version 2)
Quarter: 2013Q3

REPORT INFORMATION
  Report Type: Spontaneous
  Country: US (occurrence: US)
  Receive Date: 20130717
  Receipt Date: 20130919
  Transmission Date: 20140515
  Serious: No
  Sender: FDA-Public Use
  Company Number: US-PFIZER INC-2013205894

PATIENT
  Sex: Female

DRUGS (1)
  1. LEVOXYL [Suspect]
     Indication: THYROID DISORDER
     Dosage: 100 UG, UNK
     Route: 048

REACTIONS (1)
  - Drug ineffective [Unknown]
